FAERS Safety Report 4494463-3 (Version None)
Quarter: 2004Q4

REPORT INFORMATION
  Report Type: 
  Country: None (occurrence: None)
  Receive Date: 20041102
  Receipt Date: 20041020
  Transmission Date: 20050328
  Serious: Yes (Other)
  Sender: FDA-Public Use
  Company Number: 2004232045GB

PATIENT
  Age: 57 Year
  Sex: Female

DRUGS (5)
  1. CAMPTOSAR [Suspect]
     Indication: COLORECTAL CANCER
     Dosage: 680 MG, CYCLIC, IV
     Route: 042
     Dates: start: 20040803, end: 20040824
  2. ASPIRIN [Concomitant]
  3. ATENOLOL [Concomitant]
  4. AMLODIPINE [Concomitant]
  5. BENDROFLUAZIDE [Concomitant]

REACTIONS (7)
  - ABDOMINAL PAIN [None]
  - CHOLINERGIC SYNDROME [None]
  - DIARRHOEA [None]
  - DIZZINESS [None]
  - FLUSHING [None]
  - HYPERHIDROSIS [None]
  - VISION BLURRED [None]
